FAERS Safety Report 8771734 (Version 1)
Quarter: 2012Q4

REPORT INFORMATION
  Report Type: 
  Country: IL (occurrence: IL)
  Receive Date: 20120906
  Receipt Date: 20120906
  Transmission Date: 20130627
  Serious: Yes (Hospitalization)
  Sender: FDA-Public Use
  Company Number: IL-ELI_LILLY_AND_COMPANY-IL201209000148

PATIENT
  Sex: Female
  Weight: 47 kg

DRUGS (3)
  1. FORTEO [Suspect]
     Indication: OSTEOPOROSIS
     Dosage: 20 ug, qd
     Route: 058
     Dates: start: 20120531, end: 201207
  2. ENALADEX [Concomitant]
  3. DERALIN [Concomitant]

REACTIONS (3)
  - Malaise [Unknown]
  - Gastrointestinal infection [Unknown]
  - Weight decreased [Unknown]
